FAERS Safety Report 10423444 (Version 1)
Quarter: 2014Q3

REPORT INFORMATION
  Report Type: Spontaneous
  Country: US (occurrence: None)
  Receive Date: 20140722
  Receipt Date: 20140722
  Transmission Date: 20150326
  Serious: No
  Sender: FDA-Public Use
  Company Number: 163-10004-14063077

PATIENT
  Sex: Female
  Weight: 57.61 kg

DRUGS (4)
  1. LOMENTAL(OTHER THERAPEUTIC PRODUCTS)(UNKNOWN) [Concomitant]
  2. OTEZLA [Suspect]
     Active Substance: APREMILAST
     Indication: PSORIATIC ARTHROPATHY
     Route: 048
  3. METHOTREXATE(METHOTREXATE)(UNKNOWN) [Concomitant]
  4. ZOFRAN(ONDANSETRON HYDROCHLORIDE)(UNKNOWN) [Concomitant]

REACTIONS (3)
  - Diarrhoea [None]
  - Nausea [None]
  - Vomiting [None]
